FAERS Safety Report 7738411-9 (Version None)
Quarter: 2011Q3

REPORT INFORMATION
  Report Type: 
  Country: None (occurrence: None)
  Receive Date: 20110908
  Receipt Date: 20110907
  Transmission Date: 20111222
  Serious: Yes (Other)
  Sender: FDA-Public Use
  Company Number: PHHY2011US32046

PATIENT
  Sex: Female

DRUGS (2)
  1. GILENYA [Suspect]
     Indication: RELAPSING-REMITTING MULTIPLE SCLEROSIS
     Dosage: 0.5 MG, QD
     Route: 048
     Dates: start: 20110301
  2. GILENYA [Suspect]
     Dosage: 0.5 MG, BID
     Route: 048
     Dates: start: 20110411, end: 20110411

REACTIONS (7)
  - DYSURIA [None]
  - NAUSEA [None]
  - CYSTITIS [None]
  - FATIGUE [None]
  - COUGH [None]
  - URINARY TRACT INFECTION [None]
  - OVERDOSE [None]
